FAERS Safety Report 8890114 (Version 1)
Quarter: 2012Q4

REPORT INFORMATION
  Report Type: 
  Country: NZ (occurrence: NZ)
  Receive Date: 20121107
  Receipt Date: 20121107
  Transmission Date: 20130627
  Serious: Yes (Death, Other)
  Sender: FDA-Public Use
  Company Number: PHHY2008NZ04428

PATIENT
  Age: 70 Year
  Sex: Male

DRUGS (8)
  1. CLOZARIL [Suspect]
     Indication: SCHIZOPHRENIA
     Dates: start: 20010913
  2. CLOZARIL [Suspect]
     Dosage: 275 mg, QD
     Route: 048
     Dates: start: 20080201
  3. SODIUM VALPROATE [Concomitant]
     Dosage: 1275 mg, QD (1000mg mane, 275mg nocte)
  4. CALCIUM CARBONATE [Concomitant]
     Dosage: 1 DF, BID
     Route: 048
     Dates: start: 20080201
  5. THIAMINE [Concomitant]
     Dosage: 100 mg, at morning
     Route: 048
     Dates: start: 20080201
  6. HALOPERIDOL [Concomitant]
     Dosage: 0.5 mg, UNK
     Route: 048
     Dates: start: 20080201
  7. HABITROL [Concomitant]
     Dosage: 14 mg, QD
  8. LACTULOSE [Concomitant]
     Dosage: 20 ml, BID
     Dates: start: 20080201

REACTIONS (2)
  - Death [Fatal]
  - Loss of consciousness [Unknown]
